FAERS Safety Report 5297959-X (Version None)
Quarter: 2007Q2

REPORT INFORMATION
  Report Type: 
  Country: None (occurrence: None)
  Receive Date: 20070416
  Receipt Date: 20070412
  Transmission Date: 20071010
  Serious: Yes (Life-Threatening, Hospitalization)
  Sender: FDA-Public Use
  Company Number: ES-GLAXOSMITHKLINE-B0466391A

PATIENT
  Sex: Male

DRUGS (3)
  1. AUGMENTIN '125' [Suspect]
     Indication: DRUG USE FOR UNKNOWN INDICATION
     Route: 042
     Dates: start: 20070305, end: 20070305
  2. RANITIDINE [Suspect]
     Indication: PROPHYLAXIS
     Dosage: 50MG PER DAY
     Route: 065
     Dates: start: 20070305, end: 20070305
  3. PERFALGAN [Suspect]
     Indication: PROPHYLAXIS
     Route: 065
     Dates: start: 20070305, end: 20070305

REACTIONS (3)
  - BRONCHOSPASM [None]
  - LARYNGEAL OEDEMA [None]
  - URTICARIA [None]
